FAERS Safety Report 9312398 (Version 1)
Quarter: 2013Q2

REPORT INFORMATION
  Report Type: Spontaneous
  Country: US (occurrence: US)
  Receive Date: 20130528
  Receipt Date: 20130528
  Transmission Date: 20140414
  Serious: No
  Sender: FDA-Public Use
  Company Number: US-BRISTOL-MYERS SQUIBB COMPANY-18810853

PATIENT
  Age: 62 Year
  Sex: Male
  Weight: 107.03 kg

DRUGS (3)
  1. KOMBIGLYZE XR [Suspect]
     Dosage: STARTED 1-1.5 YEARS AGO
  2. VASOPRIL [Concomitant]
  3. CHOLESTEROL MEDICATION [Concomitant]

REACTIONS (1)
  - Muscle spasms [Unknown]
